FAERS Safety Report 25460816 (Version 1)
Quarter: 2025Q2

REPORT INFORMATION
  Report Type: Spontaneous
  Country: RO (occurrence: RO)
  Receive Date: 20250620
  Receipt Date: 20250620
  Transmission Date: 20250716
  Serious: Yes (Other)
  Sender: PFIZER
  Company Number: RO-PFIZER INC-PV202500071164

PATIENT
  Age: 60 Year

DRUGS (3)
  1. PALBOCICLIB [Suspect]
     Active Substance: PALBOCICLIB
     Indication: Invasive breast carcinoma
     Dates: start: 202012
  2. ZOLEDRONIC ACID [Suspect]
     Active Substance: ZOLEDRONIC ACID
     Indication: Invasive breast carcinoma
     Dates: start: 202012
  3. LETROZOLE [Suspect]
     Active Substance: LETROZOLE
     Indication: Invasive breast carcinoma
     Dates: start: 202012

REACTIONS (8)
  - Deep vein thrombosis [Unknown]
  - Chronic inflammatory demyelinating polyradiculoneuropathy [Unknown]
  - Metastases to bone [Unknown]
  - Balance disorder [Unknown]
  - Gait disturbance [Unknown]
  - Condition aggravated [Unknown]
  - Motor dysfunction [Unknown]
  - Fall [Unknown]

NARRATIVE: CASE EVENT DATE: 20230901
